FAERS Safety Report 15559182 (Version 1)
Quarter: 2018Q4

REPORT INFORMATION
  Report Type: Spontaneous
  Country: US (occurrence: US)
  Receive Date: 20181029
  Receipt Date: 20181029
  Transmission Date: 20190205
  Serious: No
  Sender: FDA-Public Use
  Company Number: US-TEVA-2018-US-965603

PATIENT

DRUGS (1)
  1. ZOLPIDEM [Suspect]
     Active Substance: ZOLPIDEM\ZOLPIDEM TARTRATE
     Dosage: 1 DOSAGE FORMS DAILY; 1 DF= 125/5MG
     Route: 065

REACTIONS (4)
  - Insomnia [Unknown]
  - Chills [Unknown]
  - Somnolence [Unknown]
  - Withdrawal syndrome [Unknown]
